FAERS Safety Report 4469907-3 (Version None)
Quarter: 2004Q4

REPORT INFORMATION
  Report Type: 
  Country: None (occurrence: None)
  Receive Date: 20041008
  Receipt Date: 20040928
  Transmission Date: 20050328
  Serious: Yes (Other)
  Sender: FDA-Public Use
  Company Number: PHRM2004FR02958

PATIENT
  Sex: Female

DRUGS (2)
  1. COTAREG [Suspect]
     Indication: HYPERTENSION
     Route: 048
  2. ANTIDEPRESSANTS [Concomitant]

REACTIONS (1)
  - SUDDEN ONSET OF SLEEP [None]
